FAERS Safety Report 5159103-9 (Version None)
Quarter: 2006Q4

REPORT INFORMATION
  Report Type: 
  Country: None (occurrence: None)
  Receive Date: 20061128
  Receipt Date: 20061122
  Transmission Date: 20070319
  Serious: Yes (Death)
  Sender: FDA-Public Use
  Company Number: MW-BOEHRINGER INGELHEIM PHARMACEUTICALS, INC.-2006-BP-13739BP

PATIENT
  Age: 50 Year
  Sex: Male
  Weight: 48 kg

DRUGS (5)
  1. VIRAMUNE [Suspect]
     Indication: HIV INFECTION
     Route: 048
     Dates: start: 20061103
  2. VIRAMUNE [Suspect]
     Route: 048
     Dates: start: 20061020, end: 20061102
  3. FTC [Suspect]
     Indication: HIV INFECTION
     Route: 048
     Dates: start: 20061006
  4. TENOFOVIR DF [Suspect]
     Indication: HIV INFECTION
     Route: 048
     Dates: start: 20061006
  5. FERROUS SULFATE TAB [Concomitant]

REACTIONS (3)
  - PALPITATIONS [None]
  - PSYCHOTIC DISORDER [None]
  - STEVENS-JOHNSON SYNDROME [None]
